FAERS Safety Report 5755795-1 (Version None)
Quarter: 2008Q2

REPORT INFORMATION
  Report Type: 
  Country: None (occurrence: None)
  Receive Date: 20080602
  Receipt Date: 20080528
  Transmission Date: 20081010
  Serious: Yes (Death)
  Sender: FDA-Public Use
  Company Number: PHNU2008DE01930

PATIENT
  Sex: Female

DRUGS (1)
  1. EXELON [Suspect]
     Dosage: 4.6 MG/24 HR PATCH
     Route: 062
     Dates: start: 20080406, end: 20080519

REACTIONS (1)
  - VOMITING [None]
